FAERS Safety Report 21893342 (Version 2)
Quarter: 2023Q1

REPORT INFORMATION
  Report Type: Spontaneous
  Country: FR (occurrence: FR)
  Receive Date: 20230121
  Receipt Date: 20230310
  Transmission Date: 20230418
  Serious: Yes (Life-Threatening, Hospitalization, Other)
  Sender: FDA-Public Use
  Company Number: FR-Accord-296543

PATIENT
  Age: 81 Year
  Sex: Female

DRUGS (7)
  1. SIMVASTATIN [Interacting]
     Active Substance: SIMVASTATIN
     Indication: Dyslipidaemia
  2. EZETIMIBE [Interacting]
     Active Substance: EZETIMIBE
     Indication: Dyslipidaemia
  3. PALBOCICLIB [Interacting]
     Active Substance: PALBOCICLIB
     Indication: Breast cancer metastatic
     Dosage: 21 DAYS/28
     Dates: start: 20211204, end: 2022
  4. VENLAFAXINE [Concomitant]
     Active Substance: VENLAFAXINE HYDROCHLORIDE
  5. FENUGREEK LEAF\HERBALS [Interacting]
     Active Substance: FENUGREEK LEAF\HERBALS
  6. ALLOPURINOL [Concomitant]
     Active Substance: ALLOPURINOL
  7. APIXABAN [Concomitant]
     Active Substance: APIXABAN

REACTIONS (7)
  - Rhabdomyolysis [Recovered/Resolved]
  - Condition aggravated [Recovered/Resolved]
  - Self-medication [Unknown]
  - Dropped head syndrome [Recovered/Resolved]
  - Drug interaction [Unknown]
  - Herbal interaction [Unknown]
  - Necrotising myositis [Recovered/Resolved]

NARRATIVE: CASE EVENT DATE: 20211204
